FAERS Safety Report 5098391-4 (Version None)
Quarter: 2006Q3

REPORT INFORMATION
  Report Type: 
  Country: None (occurrence: None)
  Receive Date: 20060906
  Receipt Date: 20060109
  Transmission Date: 20061208
  Serious: No
  Sender: FDA-Public Use
  Company Number: US-GLAXOSMITHKLINE-A0588563A

PATIENT
  Age: 48 Year
  Sex: Female
  Weight: 71.8 kg

DRUGS (5)
  1. REQUIP [Suspect]
     Indication: RESTLESS LEGS SYNDROME
     Route: 048
  2. BLOOD PRESSURE MEDICATION [Concomitant]
     Dosage: 25MG UNKNOWN
  3. AMBIEN [Concomitant]
  4. ZOLOFT [Concomitant]
  5. PROTONIX [Concomitant]

REACTIONS (1)
  - OEDEMA PERIPHERAL [None]
